FAERS Safety Report 7344059-0 (Version None)
Quarter: 2011Q1

REPORT INFORMATION
  Report Type: 
  Country: None (occurrence: None)
  Receive Date: 20110310
  Receipt Date: 20100520
  Transmission Date: 20110831
  Serious: No
  Sender: FDA-Public Use
  Company Number: A0860820A

PATIENT
  Age: 31 Year
  Sex: Female

DRUGS (1)
  1. NICORETTE (MINT) [Suspect]

REACTIONS (4)
  - NAUSEA [None]
  - HYPOAESTHESIA [None]
  - HEADACHE [None]
  - PARAESTHESIA [None]
